FAERS Safety Report 19787524 (Version 1)
Quarter: 2021Q3

REPORT INFORMATION
  Report Type: Spontaneous
  Country: US (occurrence: US)
  Receive Date: 20210903
  Receipt Date: 20210903
  Transmission Date: 20211014
  Serious: Yes (Life-Threatening, Hospitalization, Other)
  Sender: FDA-Public Use
  Company Number: US-ASTRAZENECA-2021A704722

PATIENT
  Age: 65 Year
  Sex: Female
  Weight: 61.2 kg

DRUGS (1)
  1. LYNPARZA [Suspect]
     Active Substance: OLAPARIB
     Indication: OVARIAN CANCER
     Route: 048

REACTIONS (4)
  - Pulmonary embolism [Unknown]
  - Pleurisy [Unknown]
  - Pneumonia [Unknown]
  - Pulmonary fibrosis [Unknown]
